FAERS Safety Report 7076758-2 (Version None)
Quarter: 2010Q4

REPORT INFORMATION
  Report Type: 
  Country: None (occurrence: None)
  Receive Date: 20101029
  Receipt Date: 20101029
  Transmission Date: 20110411
  Serious: Yes (Other)
  Sender: FDA-Public Use
  Company Number: None

PATIENT
  Age: 54 Year
  Sex: Male
  Weight: 117.4816 kg

DRUGS (1)
  1. OXYCONTIN [Suspect]
     Indication: NEUROPATHY PERIPHERAL
     Dosage: 80 MG. 1 -3 TIMES DAILY ORAL
     Route: 048
     Dates: start: 20100904

REACTIONS (4)
  - COLD SWEAT [None]
  - CONSTIPATION [None]
  - DRUG INEFFECTIVE [None]
  - DYSPNOEA [None]
